FAERS Safety Report 15158274 (Version 1)
Quarter: 2018Q3

REPORT INFORMATION
  Report Type: Report from Study
  Country: US (occurrence: BR)
  Receive Date: 20180718
  Receipt Date: 20180718
  Transmission Date: 20181010
  Serious: Yes (Hospitalization, Other)
  Sender: FDA-Public Use
  Company Number: US-SUNOVION-2016SUN003635

PATIENT
  Age: 68 Year
  Sex: Male
  Weight: 62 kg

DRUGS (6)
  1. INDACATEROL [Suspect]
     Active Substance: INDACATEROL
     Indication: CHRONIC OBSTRUCTIVE PULMONARY DISEASE
  2. XOLAIR [Suspect]
     Active Substance: OMALIZUMAB
     Indication: ASTHMA
     Dosage: 300 MG, QMO
     Route: 058
     Dates: start: 20160217
  3. SERETIDE [Concomitant]
     Active Substance: FLUTICASONE PROPIONATE\SALMETEROL XINAFOATE
     Indication: PRODUCT USED FOR UNKNOWN INDICATION
     Route: 065
  4. INDACATEROL [Suspect]
     Active Substance: INDACATEROL
     Indication: ASTHMA
     Dosage: 300 MG, QD
     Route: 055
  5. XOLAIR [Suspect]
     Active Substance: OMALIZUMAB
     Dosage: 300 MG, QMO
     Route: 058
     Dates: start: 201603
  6. XOLAIR [Suspect]
     Active Substance: OMALIZUMAB
     Dosage: 150 MG, UNK
     Route: 058
     Dates: start: 201709

REACTIONS (10)
  - Memory impairment [Not Recovered/Not Resolved]
  - Secretion discharge [Recovered/Resolved]
  - Dyspnoea [Unknown]
  - Weight decreased [Not Recovered/Not Resolved]
  - Pneumonia [Not Recovered/Not Resolved]
  - Asthma [Not Recovered/Not Resolved]
  - Malaise [Recovered/Resolved]
  - Influenza [Not Recovered/Not Resolved]
  - Asthma [Recovered/Resolved]
  - Dysphonia [Not Recovered/Not Resolved]

NARRATIVE: CASE EVENT DATE: 2015
